FAERS Safety Report 9822825 (Version 2)
Quarter: 2014Q1

REPORT INFORMATION
  Report Type: Report from Study
  Country: AU (occurrence: AU)
  Receive Date: 20140116
  Receipt Date: 20140120
  Transmission Date: 20141002
  Serious: Yes (Death, Hospitalization)
  Sender: FDA-Public Use
  Company Number: PHHY2014AU004264

PATIENT
  Sex: Male

DRUGS (2)
  1. ACLASTA [Suspect]
     Indication: OSTEOPOROSIS
     Dosage: 5 MG
     Route: 042
     Dates: start: 20120206
  2. ACLASTA [Suspect]
     Dosage: 5 MG
     Route: 042
     Dates: start: 20130213

REACTIONS (3)
  - Respiratory failure [Fatal]
  - Gastrointestinal haemorrhage [Fatal]
  - Malaise [Unknown]
